FAERS Safety Report 16669447 (Version 2)
Quarter: 2019Q3

REPORT INFORMATION
  Report Type: Report from Study
  Country: TR (occurrence: TR)
  Receive Date: 20190805
  Receipt Date: 20190812
  Transmission Date: 20191004
  Serious: Yes (Hospitalization)
  Sender: FDA-Public Use
  Company Number: TR-BAYER-2019-142305

PATIENT
  Sex: Male
  Weight: 86 kg

DRUGS (49)
  1. RITUXIMAB. [Suspect]
     Active Substance: RITUXIMAB
     Indication: NON-HODGKIN^S LYMPHOMA RECURRENT
     Dosage: 81.8 ML, QD (EVERY 4 WEEKS FOR 6 CYCLES)
     Route: 042
     Dates: start: 20190313, end: 20190313
  2. RITUXIMAB. [Suspect]
     Active Substance: RITUXIMAB
     Indication: NON-HODGKIN^S LYMPHOMA RECURRENT
     Dosage: 81 ML, QD (EVERY 4 WEEKS FOR 6 CYCLES)
     Route: 042
     Dates: start: 20190409, end: 20190409
  3. NEUPOGEN [Concomitant]
     Active Substance: FILGRASTIM
     Indication: NEUTROPHIL COUNT DECREASED
     Dosage: 48 MUI
     Route: 058
     Dates: start: 20190408, end: 201904
  4. AVIL [PHENIRAMINE MALEATE] [Concomitant]
     Indication: PREMEDICATION
  5. COPANLISIB. [Suspect]
     Active Substance: COPANLISIB
     Indication: NON-HODGKIN^S LYMPHOMA RECURRENT
     Dosage: 104 ML (SALINE)
     Route: 042
     Dates: start: 20190114, end: 20190114
  6. COPANLISIB. [Suspect]
     Active Substance: COPANLISIB
     Indication: NON-HODGKIN^S LYMPHOMA RECURRENT
     Dosage: 104 ML (SALINE)
     Route: 042
     Dates: start: 20190212, end: 20190212
  7. COPANLISIB. [Suspect]
     Active Substance: COPANLISIB
     Indication: NON-HODGKIN^S LYMPHOMA RECURRENT
     Dosage: 104 ML (SALINE)
     Route: 042
     Dates: start: 20190625, end: 20190625
  8. RITUXIMAB. [Suspect]
     Active Substance: RITUXIMAB
     Indication: NON-HODGKIN^S LYMPHOMA RECURRENT
     Dosage: 84.4 ML, QD (EVERY 4 WEEKS FOR 6 CYCLES)
     Route: 042
     Dates: start: 20190114, end: 20190114
  9. BENDAMUSTINE [Suspect]
     Active Substance: BENDAMUSTINE
     Indication: NON-HODGKIN^S LYMPHOMA RECURRENT
     Dosage: 78 ML, QD (EVERY 4 WEEKS FOR 6 CYCLES)
     Route: 042
     Dates: start: 20190213, end: 20190213
  10. NEUPOGEN [Concomitant]
     Active Substance: FILGRASTIM
     Indication: NEUTROPHIL COUNT DECREASED
     Dosage: UNK
     Route: 058
     Dates: start: 20190326, end: 20190328
  11. NEUPOGEN [Concomitant]
     Active Substance: FILGRASTIM
     Indication: NEUTROPHIL COUNT DECREASED
     Dosage: 48 MUI
     Route: 058
     Dates: start: 20190416, end: 20190418
  12. COPANLISIB. [Suspect]
     Active Substance: COPANLISIB
     Indication: NON-HODGKIN^S LYMPHOMA RECURRENT
     Dosage: 104 ML (SALINE)
     Route: 042
     Dates: start: 20190122, end: 20190122
  13. COPANLISIB. [Suspect]
     Active Substance: COPANLISIB
     Indication: NON-HODGKIN^S LYMPHOMA RECURRENT
     Dosage: 104 ML (SALINE)
     Route: 042
     Dates: start: 20190521, end: 20190521
  14. RITUXIMAB. [Suspect]
     Active Substance: RITUXIMAB
     Indication: NON-HODGKIN^S LYMPHOMA RECURRENT
     Dosage: (EVERY 4 WEEKS FOR 6 CYCLES)
     Route: 042
     Dates: start: 20190611, end: 20190611
  15. BENDAMUSTINE [Suspect]
     Active Substance: BENDAMUSTINE
     Indication: NON-HODGKIN^S LYMPHOMA RECURRENT
     Dosage: 81 ML, QD (EVERY 4 WEEKS FOR 6 CYCLES)
     Route: 042
     Dates: start: 20190114, end: 20190114
  16. BENDAMUSTINE [Suspect]
     Active Substance: BENDAMUSTINE
     Indication: NON-HODGKIN^S LYMPHOMA RECURRENT
     Dosage: 78 ML, QD (EVERY 4 WEEKS FOR 6 CYCLES)
     Route: 042
     Dates: start: 20190212, end: 20190212
  17. BENDAMUSTINE [Suspect]
     Active Substance: BENDAMUSTINE
     Indication: NON-HODGKIN^S LYMPHOMA RECURRENT
     Dosage: 78 ML, QD (EVERY 4 WEEKS FOR 6 CYCLES)
     Route: 042
     Dates: start: 20190410, end: 20190410
  18. MUPIROCIN. [Concomitant]
     Active Substance: MUPIROCIN
     Indication: DRY SKIN
     Dosage: 15 G, BID
     Route: 061
     Dates: start: 20190402, end: 20190406
  19. DEKORT [DEXAMETHASONE SODIUM PHOSPHATE] [Concomitant]
     Indication: PREMEDICATION
  20. COPANLISIB. [Suspect]
     Active Substance: COPANLISIB
     Indication: NON-HODGKIN^S LYMPHOMA RECURRENT
     Dosage: 104 ML (SALINE)
     Route: 042
     Dates: start: 20190129, end: 20190129
  21. COPANLISIB. [Suspect]
     Active Substance: COPANLISIB
     Indication: NON-HODGKIN^S LYMPHOMA RECURRENT
     Dosage: 104 ML (SALINE)
     Route: 042
     Dates: start: 20190416, end: 20190416
  22. BENDAMUSTINE [Suspect]
     Active Substance: BENDAMUSTINE
     Indication: NON-HODGKIN^S LYMPHOMA RECURRENT
     Dosage: 79 ML, QD (EVERY 4 WEEKS FOR 6 CYCLES)
     Route: 042
     Dates: start: 20190314, end: 20190314
  23. BENDAMUSTINE [Suspect]
     Active Substance: BENDAMUSTINE
     Indication: NON-HODGKIN^S LYMPHOMA RECURRENT
     Dosage: 78 ML, QD (EVERY 4 WEEKS FOR 6 CYCLES)
     Route: 042
     Dates: start: 20190409, end: 20190409
  24. BENDAMUSTINE [Suspect]
     Active Substance: BENDAMUSTINE
     Indication: NON-HODGKIN^S LYMPHOMA RECURRENT
     Dosage: 75 ML, QD (EVERY 4 WEEKS FOR 6 CYCLES)
     Route: 042
     Dates: start: 20190612, end: 20190612
  25. PAROL [Concomitant]
     Active Substance: ACETAMINOPHEN
     Indication: PREMEDICATION
  26. COPANLISIB. [Suspect]
     Active Substance: COPANLISIB
     Indication: NON-HODGKIN^S LYMPHOMA RECURRENT
     Dosage: 104 ML (SALINE)
     Route: 042
     Dates: start: 20190219, end: 20190219
  27. COPANLISIB. [Suspect]
     Active Substance: COPANLISIB
     Indication: NON-HODGKIN^S LYMPHOMA RECURRENT
     Dosage: 104 ML (SALINE)
     Route: 042
     Dates: start: 20190226, end: 20190226
  28. COPANLISIB. [Suspect]
     Active Substance: COPANLISIB
     Indication: NON-HODGKIN^S LYMPHOMA RECURRENT
     Dosage: 104 ML (SALINE)
     Route: 042
     Dates: start: 20190409, end: 20190409
  29. COPANLISIB. [Suspect]
     Active Substance: COPANLISIB
     Indication: NON-HODGKIN^S LYMPHOMA RECURRENT
     Dosage: 104 ML (SALINE)
     Route: 042
     Dates: start: 20190611, end: 20190611
  30. COPANLISIB. [Suspect]
     Active Substance: COPANLISIB
     Indication: NON-HODGKIN^S LYMPHOMA RECURRENT
     Dosage: 104 ML (SALINE)
     Route: 042
     Dates: start: 20190709, end: 20190709
  31. RITUXIMAB. [Suspect]
     Active Substance: RITUXIMAB
     Indication: NON-HODGKIN^S LYMPHOMA RECURRENT
     Dosage: 81.4 ML, QD (EVERY 4 WEEKS FOR 6 CYCLES)
     Route: 042
     Dates: start: 20190212, end: 20190212
  32. RITUXIMAB. [Suspect]
     Active Substance: RITUXIMAB
     Indication: NON-HODGKIN^S LYMPHOMA RECURRENT
     Dosage: 81 ML, QD (EVERY 4 WEEKS FOR 6 CYCLES)
     Route: 042
     Dates: start: 20190507, end: 20190507
  33. EXCIPIAL HYDRO [Concomitant]
     Indication: DRY SKIN
     Dosage: 200 ML, BID
     Route: 061
     Dates: start: 20190402, end: 20190406
  34. DUACT [Concomitant]
     Active Substance: ACRIVASTINE\PSEUDOEPHEDRINE HYDROCHLORIDE
     Indication: BRONCHITIS
     Dosage: 8 MG ACRIVASTINE ; 60 MG PSEUDOEPHEDRINE - HCI 3X1
     Route: 048
     Dates: start: 20190610, end: 20190617
  35. COPANLISIB. [Suspect]
     Active Substance: COPANLISIB
     Indication: NON-HODGKIN^S LYMPHOMA RECURRENT
     Dosage: 104 ML (SALINE)
     Route: 042
     Dates: start: 20190313, end: 20190313
  36. COPANLISIB. [Suspect]
     Active Substance: COPANLISIB
     Indication: NON-HODGKIN^S LYMPHOMA RECURRENT
     Dosage: 104 ML (SALINE)
     Route: 042
     Dates: start: 20190424, end: 20190424
  37. COPANLISIB. [Suspect]
     Active Substance: COPANLISIB
     Indication: NON-HODGKIN^S LYMPHOMA RECURRENT
     Dosage: 104 ML (SALINE)
     Route: 042
     Dates: start: 20190507, end: 20190507
  38. COPANLISIB. [Suspect]
     Active Substance: COPANLISIB
     Indication: NON-HODGKIN^S LYMPHOMA RECURRENT
     Dosage: 104 ML (SALINE)
     Route: 042
     Dates: start: 20190514, end: 20190514
  39. BENDAMUSTINE [Suspect]
     Active Substance: BENDAMUSTINE
     Indication: NON-HODGKIN^S LYMPHOMA RECURRENT
     Dosage: 78 ML, QD (EVERY 4 WEEKS FOR 6 CYCLES)
     Route: 042
     Dates: start: 20190508, end: 20190508
  40. BUTENAFINE [Concomitant]
     Active Substance: BUTENAFINE HYDROCHLORIDE
     Indication: DRY SKIN
     Dosage: 30 G, QD
     Route: 061
     Dates: start: 20190402, end: 20190506
  41. BENDAMUSTINE [Suspect]
     Active Substance: BENDAMUSTINE
     Indication: NON-HODGKIN^S LYMPHOMA RECURRENT
     Dosage: 81 ML, QD (EVERY 4 WEEKS FOR 6 CYCLES)
     Route: 042
     Dates: start: 20190115, end: 20190115
  42. BENDAMUSTINE [Suspect]
     Active Substance: BENDAMUSTINE
     Indication: NON-HODGKIN^S LYMPHOMA RECURRENT
     Dosage: 79 ML, QD (EVERY 4 WEEKS FOR 6 CYCLES)
     Route: 042
     Dates: start: 20190313, end: 20190313
  43. BENDAMUSTINE [Suspect]
     Active Substance: BENDAMUSTINE
     Indication: NON-HODGKIN^S LYMPHOMA RECURRENT
     Dosage: 75 ML, QD (EVERY 4 WEEKS FOR 6 CYCLES)
     Route: 042
     Dates: start: 20190611, end: 20190611
  44. KYTRIL [Concomitant]
     Active Substance: GRANISETRON HYDROCHLORIDE
     Indication: NAUSEA
     Dosage: 3 MG, QD
     Route: 042
     Dates: start: 20190409, end: 20190409
  45. COPANLISIB. [Suspect]
     Active Substance: COPANLISIB
     Indication: NON-HODGKIN^S LYMPHOMA RECURRENT
     Dosage: 104 ML (SALINE)
     Route: 042
     Dates: start: 20190319, end: 20190319
  46. COPANLISIB. [Suspect]
     Active Substance: COPANLISIB
     Indication: NON-HODGKIN^S LYMPHOMA RECURRENT
     Dosage: 104 ML (SALINE)
     Route: 042
     Dates: start: 20190618, end: 20190618
  47. BENDAMUSTINE [Suspect]
     Active Substance: BENDAMUSTINE
     Indication: NON-HODGKIN^S LYMPHOMA RECURRENT
     Dosage: 78 ML, QD (EVERY 4 WEEKS FOR 6 CYCLES)
     Route: 042
     Dates: start: 20190507, end: 20190507
  48. AMOKSILAV-BID [Concomitant]
     Indication: BRONCHITIS
     Dosage: 1000 MG, QD (2X1)
     Route: 048
     Dates: start: 20190611, end: 20190617
  49. G-CSF [Concomitant]
     Active Substance: GRANULOCYTE COLONY-STIMULATING FACTOR NOS
     Indication: NEUTROPHIL COUNT DECREASED
     Dosage: 48 MUI/0.8ML
     Route: 058
     Dates: start: 20190726

REACTIONS (1)
  - Cytomegalovirus infection [Recovered/Resolved]

NARRATIVE: CASE EVENT DATE: 20190726
